FAERS Safety Report 8888520 (Version 1)
Quarter: 2012Q4

REPORT INFORMATION
  Report Type: 
  Country: AR (occurrence: AR)
  Receive Date: 20121106
  Receipt Date: 20121106
  Transmission Date: 20130627
  Serious: Yes (Other)
  Sender: FDA-Public Use
  Company Number: PHHY2012AR101419

PATIENT
  Sex: Female

DRUGS (2)
  1. GALVUS MET [Suspect]
     Dosage: 1 DF (850/50mg), daily
     Dates: start: 201206
  2. DIOVAN D [Suspect]
     Indication: HYPERTENSION
     Dosage: 1 DF (160/12.5 mg), daily

REACTIONS (1)
  - Cataract [Recovering/Resolving]
